FAERS Safety Report 4761935-3 (Version None)
Quarter: 2005Q3

REPORT INFORMATION
  Report Type: 
  Country: None (occurrence: None)
  Receive Date: 20050831
  Receipt Date: 20050509
  Transmission Date: 20060218
  Serious: No
  Sender: FDA-Public Use
  Company Number: PHEH2005US05441

PATIENT

DRUGS (1)
  1. ENABLEX [Suspect]

REACTIONS (1)
  - VISION BLURRED [None]
